FAERS Safety Report 20850792 (Version 2)
Quarter: 2022Q2

REPORT INFORMATION
  Report Type: Spontaneous
  Country: US (occurrence: US)
  Receive Date: 20220519
  Receipt Date: 20220620
  Transmission Date: 20220721
  Serious: No
  Sender: FDA-Public Use
  Company Number: US-PFIZER INC-202200526554

PATIENT
  Age: 53 Year
  Sex: Female

DRUGS (1)
  1. IBRANCE [Suspect]
     Active Substance: PALBOCICLIB
     Dosage: UNK

REACTIONS (5)
  - Aphasia [Unknown]
  - Extra dose administered [Unknown]
  - Malaise [Unknown]
  - Illness [Unknown]
  - Abulia [Unknown]

NARRATIVE: CASE EVENT DATE: 20220101
